FAERS Safety Report 16798660 (Version 3)
Quarter: 2020Q1

REPORT INFORMATION
  Report Type: Spontaneous
  Country: US (occurrence: US)
  Receive Date: 20190912
  Receipt Date: 20200105
  Transmission Date: 20200409
  Serious: No
  Sender: FDA-Public Use
  Company Number: US-GLENMARK PHARMACEUTICALS-2019GMK042313

PATIENT

DRUGS (6)
  1. EQUATE                             /00002701/ [Concomitant]
     Indication: ARTHROPOD BITE
  2. VESICARE [Concomitant]
     Active Substance: SOLIFENACIN SUCCINATE
     Indication: INCONTINENCE
     Dosage: UNK, OD
     Route: 048
  3. ESTRADIOL VAGINAL INSERTS USP [Suspect]
     Active Substance: ESTRADIOL
     Indication: VULVOVAGINAL DRYNESS
  4. EQUATE                             /00002701/ [Concomitant]
     Indication: PRURITUS
     Dosage: UNK
     Route: 065
  5. SYNTHROID [Concomitant]
     Active Substance: LEVOTHYROXINE SODIUM
     Indication: THYROID DISORDER
     Dosage: UNK, OD
     Route: 048
  6. ESTRADIOL VAGINAL INSERTS USP [Suspect]
     Active Substance: ESTRADIOL
     Indication: VULVOVAGINAL PRURITUS
     Dosage: TWICE A WEEK (TUESDAY AND FRIDAY)
     Route: 067

REACTIONS (3)
  - Device issue [Unknown]
  - No adverse event [Unknown]
  - Product dose omission [Unknown]
